FAERS Safety Report 22890612 (Version 2)
Quarter: 2024Q2

REPORT INFORMATION
  Report Type: Report from Study
  Country: BR (occurrence: BR)
  Receive Date: 20230901
  Receipt Date: 20240608
  Transmission Date: 20240715
  Serious: Yes (Hospitalization, Other)
  Sender: FDA-Public Use
  Company Number: BR-ABBVIE-5388800

PATIENT
  Age: 53 Year
  Sex: Female
  Weight: 63 kg

DRUGS (1)
  1. RINVOQ [Suspect]
     Active Substance: UPADACITINIB
     Indication: Rheumatoid arthritis
     Route: 048
     Dates: start: 20200928, end: 20230320

REACTIONS (8)
  - Plasma cell myeloma [Not Recovered/Not Resolved]
  - Catheter placement [Unknown]
  - Dyspnoea [Not Recovered/Not Resolved]
  - Pyrexia [Recovering/Resolving]
  - Chest pain [Recovering/Resolving]
  - Pyrexia [Recovered/Resolved]
  - Hospitalisation [Unknown]
  - Cardiac disorder [Unknown]

NARRATIVE: CASE EVENT DATE: 20220701
